FAERS Safety Report 12647057 (Version 1)
Quarter: 2016Q3

REPORT INFORMATION
  Report Type: Spontaneous
  Country: GB (occurrence: GB)
  Receive Date: 20160812
  Receipt Date: 20160812
  Transmission Date: 20161109
  Serious: Yes (Other)
  Sender: FDA-Public Use
  Company Number: GB-TEVA-683053ACC

PATIENT
  Age: 37 Year
  Sex: Female
  Weight: 63.5 kg

DRUGS (5)
  1. AMITRIPTYLINE [Concomitant]
     Active Substance: AMITRIPTYLINE
     Indication: MIGRAINE PROPHYLAXIS
  2. SUMATRIPTAN. [Suspect]
     Active Substance: SUMATRIPTAN
     Indication: MIGRAINE
     Route: 048
     Dates: start: 20160721, end: 20160721
  3. COCODAMOL [Concomitant]
     Active Substance: ACETAMINOPHEN\CODEINE PHOSPHATE
     Indication: HEADACHE
     Dosage: WHEN A MIGRAINE INCLUDES A BAD HEADACHE. I DID NOT TAKE ONE YESTERDAY.
  4. PIRITON [Concomitant]
     Active Substance: CHLORPHENIRAMINE MALEATE
     Indication: SEASONAL ALLERGY
     Dosage: TAKEN OCCASIONALLY. I DID NOT TAKE A TABLET YESTERDAY.
  5. QVAR [Concomitant]
     Active Substance: BECLOMETHASONE DIPROPIONATE
     Indication: ASTHMA PROPHYLAXIS
     Dosage: 100 MICROGRAM DAILY;
     Route: 055

REACTIONS (10)
  - Agitation [Recovered/Resolved]
  - Musculoskeletal pain [Recovered/Resolved]
  - Dizziness [Recovering/Resolving]
  - Presyncope [Recovering/Resolving]
  - Paraesthesia [Recovering/Resolving]
  - Arthralgia [Recovered/Resolved]
  - Panic reaction [Recovered/Resolved]
  - Tension [Unknown]
  - Limb discomfort [Recovered/Resolved]
  - Restless legs syndrome [Recovered/Resolved]

NARRATIVE: CASE EVENT DATE: 20160721
